FAERS Safety Report 22376290 (Version 1)
Quarter: 2023Q2

REPORT INFORMATION
  Report Type: Spontaneous
  Country: CN (occurrence: CN)
  Receive Date: 20230527
  Receipt Date: 20230527
  Transmission Date: 20230721
  Serious: Yes (Life-Threatening, Hospitalization)
  Sender: FDA-Public Use
  Company Number: CN-STRIDES ARCOLAB LIMITED-2023SP007599

PATIENT
  Age: 64 Year
  Sex: Male

DRUGS (4)
  1. MORPHINE SULFATE [Interacting]
     Active Substance: MORPHINE SULFATE
     Indication: Cancer pain
     Dosage: UNK, EVERY 12 HRS (SUSTAINED-RELEASE TABLETS (30-60 MG).
     Route: 048
  2. ESTAZOLAM [Interacting]
     Active Substance: ESTAZOLAM
     Indication: Insomnia
     Dosage: 1 MILLIGRAM (TABLET)
     Route: 048
  3. PLATINUM [Concomitant]
     Active Substance: PLATINUM
     Indication: Peritoneal mesothelioma malignant
     Dosage: UNK
     Route: 065
  4. PEMETREXED [Concomitant]
     Active Substance: PEMETREXED
     Indication: Peritoneal mesothelioma malignant
     Dosage: UNK
     Route: 065

REACTIONS (11)
  - Renal injury [Unknown]
  - Liver injury [Unknown]
  - Respiratory failure [Unknown]
  - Pupillary reflex impaired [Unknown]
  - Reflexes abnormal [Unknown]
  - Drug interaction [Unknown]
  - Hypotension [Unknown]
  - Coma [Recovered/Resolved]
  - Miosis [Unknown]
  - Toxicity to various agents [Unknown]
  - Overdose [Unknown]
